FAERS Safety Report 20749442 (Version 1)
Quarter: 2022Q2

REPORT INFORMATION
  Report Type: Spontaneous
  Country: TR (occurrence: TR)
  Receive Date: 20220426
  Receipt Date: 20220426
  Transmission Date: 20220721
  Serious: Yes (Other)
  Sender: FDA-Public Use
  Company Number: TR-AMERICAN REGENT INC-2022001043

PATIENT
  Age: 29 Year
  Sex: Female

DRUGS (1)
  1. FERINJECT [Suspect]
     Active Substance: FERRIC CARBOXYMALTOSE
     Indication: Anaemia
     Dosage: 100 MG, 2 IN 1 D
     Route: 042
     Dates: start: 20220321, end: 20220321

REACTIONS (5)
  - Maternal exposure during pregnancy [Unknown]
  - Tachycardia [Recovering/Resolving]
  - Chest pain [Recovering/Resolving]
  - Headache [Recovering/Resolving]
  - Dyspnoea [Recovering/Resolving]

NARRATIVE: CASE EVENT DATE: 20220322
